FAERS Safety Report 16338827 (Version 1)
Quarter: 2019Q2

REPORT INFORMATION
  Report Type: Spontaneous
  Country: FI (occurrence: FI)
  Receive Date: 20190521
  Receipt Date: 20190521
  Transmission Date: 20190711
  Serious: Yes (Other)
  Sender: FDA-Public Use
  Company Number: FI-ASTRAZENECA-2019SE71943

PATIENT
  Age: 94 Year
  Sex: Female

DRUGS (6)
  1. VITAMIN C [Concomitant]
     Active Substance: ASCORBIC ACID
  2. OPAMOX [Suspect]
     Active Substance: OXAZEPAM
     Indication: SEDATION
     Dosage: UNKNOWN
     Route: 048
  3. MACROGOL 4000 [Suspect]
     Active Substance: POLYETHYLENE GLYCOL 4000
     Indication: CONSTIPATION
     Route: 048
  4. LEVOLAC [Concomitant]
     Active Substance: LACTULOSE
     Indication: DYSCHEZIA
  5. KETIPINOR [Suspect]
     Active Substance: QUETIAPINE FUMARATE
     Indication: BEHAVIOUR DISORDER
     Dosage: 1/4 TABLET WHEN NEEDED, 1 TABLET FOR THE NIGHT
     Route: 048
     Dates: start: 2007
  6. IRON [Concomitant]
     Active Substance: IRON

REACTIONS (8)
  - Pneumonia [Unknown]
  - Urine output decreased [Unknown]
  - Constipation [Unknown]
  - Loss of consciousness [Unknown]
  - Secretion discharge [Unknown]
  - Cholangitis [Unknown]
  - Chromaturia [Unknown]
  - Wheezing [Unknown]

NARRATIVE: CASE EVENT DATE: 2018
